FAERS Safety Report 9004838 (Version 1)
Quarter: 2013Q1

REPORT INFORMATION
  Report Type: Spontaneous
  Country: US (occurrence: None)
  Receive Date: 20130107
  Receipt Date: 20130107
  Transmission Date: 20140127
  Serious: Yes (Hospitalization)
  Sender: FDA-Public Use
  Company Number: None

PATIENT
  Age: 19 Year
  Sex: Female
  Weight: 49.4 kg

DRUGS (5)
  1. FERRIPROX [Suspect]
     Indication: IRON OVERLOAD
     Route: 048
     Dates: start: 20120615, end: 20121223
  2. FERRIPROX [Suspect]
     Indication: TRANSFUSION RELATED COMPLICATION
     Route: 048
     Dates: start: 20120615, end: 20121223
  3. HYDROXYUREA [Concomitant]
  4. FOLIC ACID [Concomitant]
  5. DIGOXIN [Concomitant]

REACTIONS (2)
  - Neutropenia [None]
  - Staphylococcal infection [None]
